FAERS Safety Report 10535119 (Version 5)
Quarter: 2015Q1

REPORT INFORMATION
  Report Type: Spontaneous
  Country: BR (occurrence: BR)
  Receive Date: 20141022
  Receipt Date: 20150313
  Transmission Date: 20150720
  Serious: Yes (Hospitalization, Other)
  Sender: FDA-Public Use
  Company Number: BR-GLAXOSMITHKLINE-BR2014GSK006938

PATIENT
  Age: 2 Year
  Sex: Female
  Weight: 10.7 kg

DRUGS (7)
  1. AEROLIN [Suspect]
     Active Substance: ALBUTEROL
     Indication: RESPIRATORY DISORDER
     Dosage: UNK
     Route: 065
  2. SERETIDE [Suspect]
     Active Substance: FLUTICASONE FUROATE\SALMETEROL XINAFOATE
     Dosage: 25/125 MCG (5 DOSES EVERY 20 MINUTES, ON THE FIRST DAY, AND 3 DOSES EVERY 30 MINUTES, ON THE SECOND)
  3. SERETIDE [Suspect]
     Active Substance: FLUTICASONE FUROATE\SALMETEROL XINAFOATE
     Indication: ASTHMATIC CRISIS
     Dosage: UNK
     Route: 055
     Dates: start: 20140912, end: 20140929
  4. AMOXICILLIN. [Concomitant]
     Active Substance: AMOXICILLIN
     Indication: PRODUCT USED FOR UNKNOWN INDICATION
     Route: 065
  5. AZITHROMYCIN [Concomitant]
     Active Substance: AZITHROMYCIN ANHYDROUS
     Indication: PRODUCT USED FOR UNKNOWN INDICATION
     Route: 065
  6. SALBUTAMOL [Concomitant]
     Active Substance: ALBUTEROL
     Indication: PRODUCT USED FOR UNKNOWN INDICATION
     Dosage: UNK
     Route: 065
  7. RANITIDINE [Concomitant]
     Active Substance: RANITIDINE\RANITIDINE HYDROCHLORIDE
     Indication: PRODUCT USED FOR UNKNOWN INDICATION
     Dosage: UNK
     Route: 065

REACTIONS (16)
  - Respiratory disorder [Not Recovered/Not Resolved]
  - Pneumonia viral [Unknown]
  - Oral mucosal erythema [Recovered/Resolved]
  - Febrile convulsion [Unknown]
  - Hypertension [Recovered/Resolved]
  - Dysphonia [Unknown]
  - Adverse event [Unknown]
  - Asthmatic crisis [Not Recovered/Not Resolved]
  - Pyrexia [Unknown]
  - Crying [Not Recovered/Not Resolved]
  - Oral pruritus [Unknown]
  - Platelet count decreased [Not Recovered/Not Resolved]
  - Hyperhidrosis [Not Recovered/Not Resolved]
  - Blood immunoglobulin G increased [Unknown]
  - Feeling cold [Recovered/Resolved]
  - Overdose [Not Recovered/Not Resolved]

NARRATIVE: CASE EVENT DATE: 20150307
